FAERS Safety Report 8926913 (Version 1)
Quarter: 2012Q4

REPORT INFORMATION
  Report Type: 
  Country: US (occurrence: US)
  Receive Date: 20121127
  Receipt Date: 20121127
  Transmission Date: 20130627
  Serious: Yes (Other)
  Sender: FDA-Public Use
  Company Number: CHPA2012US011632

PATIENT
  Age: 56 Year
  Sex: Male
  Weight: 95.24 kg

DRUGS (1)
  1. EXCEDRIN MIGRAINE [Suspect]
     Indication: MIGRAINE
     Dosage: UNK DF, UNK
     Dates: start: 20111215

REACTIONS (10)
  - Spinal compression fracture [Unknown]
  - Amnesia [Unknown]
  - Body height decreased [Unknown]
  - Injury [Unknown]
  - Back pain [Recovered/Resolved]
  - Tooth abscess [Unknown]
  - Activities of daily living impaired [Recovered/Resolved]
  - Asthenia [Unknown]
  - Musculoskeletal stiffness [Unknown]
  - Muscle tightness [Unknown]
